FAERS Safety Report 8586351-8 (Version None)
Quarter: 2012Q3

REPORT INFORMATION
  Report Type: 
  Country: None (occurrence: None)
  Receive Date: 20120810
  Receipt Date: 20120112
  Transmission Date: 20120928
  Serious: Yes (Hospitalization)
  Sender: FDA-Public Use
  Company Number: US-ROCHE-1098746

PATIENT
  Age: 42 Year
  Sex: Male

DRUGS (10)
  1. ACTIVASE [Suspect]
     Indication: ACUTE MYOCARDIAL INFARCTION
  2. IBUPROFEN [Concomitant]
  3. LITHIUM CARBONATE [Concomitant]
     Dosage: 1 IN MORNING, 2 AT BEDTIME
     Route: 048
  4. XANAX [Concomitant]
  5. MICRONASE [Concomitant]
     Route: 048
  6. MAXIDEX [Concomitant]
     Route: 048
  7. LOPRESSOR [Concomitant]
     Route: 048
  8. CARBAMAZEPINE [Concomitant]
     Route: 048
  9. RESERPINE [Concomitant]
     Route: 048
  10. AMITRIPTYLINE HCL [Concomitant]

REACTIONS (3)
  - CHEST PAIN [None]
  - VENTRICULAR EXTRASYSTOLES [None]
  - MUSCULOSKELETAL PAIN [None]
